FAERS Safety Report 24028991 (Version 2)
Quarter: 2024Q3

REPORT INFORMATION
  Report Type: Spontaneous
  Country: US (occurrence: US)
  Receive Date: 20240628
  Receipt Date: 20240726
  Transmission Date: 20241017
  Serious: Yes (Death, Other)
  Sender: BLUEPRINT MEDICINES
  Company Number: US-Blueprint Medicines Corporation-LT-US-2024-001256

PATIENT
  Age: 31 Year
  Sex: Male

DRUGS (8)
  1. AYVAKIT [Suspect]
     Active Substance: AVAPRITINIB
     Indication: Mastocytic leukaemia
     Route: 065
  2. CLADRIBINE [Suspect]
     Active Substance: CLADRIBINE
     Indication: Mastocytic leukaemia
     Route: 065
  3. IMATINIB [Suspect]
     Active Substance: IMATINIB
     Indication: Mastocytic leukaemia
     Route: 065
  4. MIDOSTAURIN [Suspect]
     Active Substance: MIDOSTAURIN
     Indication: Mastocytic leukaemia
     Route: 065
  5. FILGRASTIM [Concomitant]
     Active Substance: FILGRASTIM
     Indication: Mastocytic leukaemia
     Route: 065
  6. Cytrabine [Concomitant]
     Indication: Mastocytic leukaemia
     Route: 065
  7. EPINEPHRINE [Concomitant]
     Active Substance: EPINEPHRINE
     Indication: Hypotension
     Route: 042
  8. EPINEPHRINE [Concomitant]
     Active Substance: EPINEPHRINE
     Indication: Mast cell activation syndrome
     Route: 030

REACTIONS (5)
  - Malignant neoplasm progression [Fatal]
  - Anaphylactic reaction [Unknown]
  - Malignant pleural effusion [Unknown]
  - Malignant ascites [Unknown]
  - Therapy non-responder [Unknown]
